FAERS Safety Report 11532594 (Version 2)
Quarter: 2015Q4

REPORT INFORMATION
  Report Type: Report from Study
  Country: DE (occurrence: DE)
  Receive Date: 20150921
  Receipt Date: 20151020
  Transmission Date: 20160304
  Serious: Yes (Death)
  Sender: FDA-Public Use
  Company Number: PHHY2015DE113049

PATIENT
  Sex: Female
  Weight: 103 kg

DRUGS (1)
  1. LETROZOLE. [Suspect]
     Active Substance: LETROZOLE
     Indication: BREAST CANCER
     Dosage: 2.5 MG, QD
     Route: 065
     Dates: start: 20130108, end: 20130910

REACTIONS (4)
  - Renal failure [Fatal]
  - Metastases to bone [Fatal]
  - Multi-organ failure [Fatal]
  - Metastases to lung [Fatal]
